APPROVED DRUG PRODUCT: BRIVARACETAM
Active Ingredient: BRIVARACETAM
Strength: 100MG
Dosage Form/Route: TABLET;ORAL
Application: A214918 | Product #005
Applicant: LUPIN LTD
Approved: Dec 20, 2022 | RLD: No | RS: No | Type: DISCN